FAERS Safety Report 7686629-6 (Version None)
Quarter: 2011Q3

REPORT INFORMATION
  Report Type: 
  Country: None (occurrence: None)
  Receive Date: 20110816
  Receipt Date: 20110816
  Transmission Date: 20111222
  Serious: Yes (Hospitalization)
  Sender: FDA-Public Use
  Company Number: None

PATIENT
  Age: 76 Year
  Sex: Female
  Weight: 51.2 kg

DRUGS (2)
  1. SIMAVASTATIN [Concomitant]
  2. ZOCOR [Suspect]
     Indication: HYPERLIPIDAEMIA

REACTIONS (5)
  - METABOLIC ACIDOSIS [None]
  - ASTHENIA [None]
  - BLOOD GLUCOSE INCREASED [None]
  - RENAL FAILURE ACUTE [None]
  - RHABDOMYOLYSIS [None]
